FAERS Safety Report 15983332 (Version 3)
Quarter: 2021Q3

REPORT INFORMATION
  Report Type: Spontaneous
  Country: ES (occurrence: ES)
  Receive Date: 20190220
  Receipt Date: 20210731
  Transmission Date: 20211014
  Serious: Yes (Other)
  Sender: FDA-Public Use
  Company Number: ES-AUROBINDO-AUR-APL-2019-008620

PATIENT
  Age: 38 Year
  Sex: Female

DRUGS (18)
  1. PARACETAMOL [Suspect]
     Active Substance: ACETAMINOPHEN
     Indication: NEPHRITIC SYNDROME
     Dosage: UNK
     Route: 042
  2. PARACETAMOL [Suspect]
     Active Substance: ACETAMINOPHEN
     Indication: RENAL COLIC
  3. DIAZEPAM. [Suspect]
     Active Substance: DIAZEPAM
     Indication: NEPHRITIC SYNDROME
  4. BUSCOPAN [Suspect]
     Active Substance: BUTYLSCOPOLAMINE BROMIDE
     Indication: NEPHRITIC SYNDROME
     Dosage: UNK
     Route: 042
  5. METAMIZOLE SODIUM [Suspect]
     Active Substance: METAMIZOLE SODIUM
     Indication: NEPHRITIC SYNDROME
     Dosage: UNK
     Route: 042
  6. METAMIZOLE SODIUM [Suspect]
     Active Substance: METAMIZOLE SODIUM
     Indication: RENAL PAIN
  7. DOLANTINA [Suspect]
     Active Substance: MEPERIDINE HYDROCHLORIDE
     Indication: NEPHRITIC SYNDROME
     Dosage: UNK
     Route: 065
  8. DOLANTINA [Suspect]
     Active Substance: MEPERIDINE HYDROCHLORIDE
     Indication: RENAL COLIC
  9. DICLOFENAC SODIUM. [Suspect]
     Active Substance: DICLOFENAC SODIUM
     Indication: RENAL COLIC
     Dosage: 50 MILLIGRAM, TWO TIMES A DAY ((50 MG EVERY 12 HOURS) )
     Route: 030
  10. DIPYRONE [Concomitant]
     Active Substance: DIPYRONE
     Indication: RENAL PAIN
     Route: 042
  11. BUSCOPAN [Suspect]
     Active Substance: BUTYLSCOPOLAMINE BROMIDE
     Indication: RENAL PAIN
  12. METAMIZOLE SODIUM [Suspect]
     Active Substance: METAMIZOLE SODIUM
     Indication: RENAL COLIC
  13. BUSCOPAN [Suspect]
     Active Substance: BUTYLSCOPOLAMINE BROMIDE
     Indication: RENAL COLIC
  14. PARACETAMOL [Suspect]
     Active Substance: ACETAMINOPHEN
     Indication: RENAL PAIN
  15. DIAZEPAM. [Suspect]
     Active Substance: DIAZEPAM
     Indication: RENAL COLIC
     Dosage: UNK
     Route: 042
  16. DOLANTINA [Suspect]
     Active Substance: MEPERIDINE HYDROCHLORIDE
     Indication: RENAL PAIN
  17. DICLOFENAC SODIUM. [Suspect]
     Active Substance: DICLOFENAC SODIUM
     Indication: NEPHRITIC SYNDROME
  18. DICLOFENAC SODIUM. [Suspect]
     Active Substance: DICLOFENAC SODIUM
     Indication: PAIN

REACTIONS (2)
  - Oligohydramnios [Recovered/Resolved]
  - Exposure during pregnancy [Unknown]
